FAERS Safety Report 4610806-1 (Version None)
Quarter: 2005Q2

REPORT INFORMATION
  Report Type: 
  Country: None (occurrence: None)
  Receive Date: 20050223
  Receipt Date: 20040311
  Transmission Date: 20051028
  Serious: Yes (Disabling)
  Sender: FDA-Public Use
  Company Number: WAES 0403USA01178

PATIENT
  Age: 70 Year
  Sex: Male

DRUGS (11)
  1. ZOCOR [Suspect]
     Indication: BLOOD CHOLESTEROL INCREASED
     Dosage: 40 MG/DAILY/PO
     Route: 048
     Dates: start: 20020101
  2. ALTACE [Concomitant]
  3. LANOXIN [Concomitant]
  4. PROTONIX [Concomitant]
  5. DHONDROITIN [Concomitant]
  6. DIPYRIDAMOLE [Concomitant]
  7. DYCLONINE HYDROCHLORIDE [Concomitant]
  8. FUROSEMIDE [Concomitant]
  9. GLUCOSAMINE [Concomitant]
  10. IMIPRAMINE HCL [Concomitant]
  11. QUINIDINE HCL [Concomitant]

REACTIONS (1)
  - ARTHRITIS [None]
